FAERS Safety Report 7621148-4 (Version None)
Quarter: 2011Q3

REPORT INFORMATION
  Report Type: 
  Country: None (occurrence: None)
  Receive Date: 20110719
  Receipt Date: 20110711
  Transmission Date: 20111222
  Serious: Yes (Hospitalization)
  Sender: FDA-Public Use
  Company Number: PHHY2011US63355

PATIENT
  Age: 53 Year
  Sex: Male

DRUGS (7)
  1. RITUXIMAB [Concomitant]
  2. PREDNISONE [Concomitant]
  3. PRAVASTATIN [Concomitant]
     Dosage: 20 MG,DAILY
  4. AZATHIOPRINE [Concomitant]
     Dosage: 2 MG/KG, DAY
  5. VALGANCICLOVIR [Concomitant]
  6. ASPIRIN [Concomitant]
     Dosage: 325 MG, DAILY
  7. CYCLOSPORINE [Suspect]
     Indication: HEART TRANSPLANT

REACTIONS (8)
  - EPSTEIN-BARR VIRUS ASSOCIATED LYMPHOPROLIFERATIVE DISORDER [None]
  - HEART TRANSPLANT REJECTION [None]
  - MULTIPLE MYELOMA [None]
  - ANGIOPATHY [None]
  - CORONARY ARTERY OCCLUSION [None]
  - CYTOMEGALOVIRUS VIRAEMIA [None]
  - CORONARY ARTERY STENOSIS [None]
  - CORONARY ARTERY DISEASE [None]
